FAERS Safety Report 23330695 (Version 2)
Quarter: 2024Q1

REPORT INFORMATION
  Report Type: Spontaneous
  Country: US (occurrence: US)
  Receive Date: 20231222
  Receipt Date: 20240104
  Transmission Date: 20240410
  Serious: Yes (Hospitalization, Other)
  Sender: FDA-Public Use
  Company Number: US-BIOVITRUM-2023-US-018806

PATIENT
  Age: 66 Year
  Sex: Female

DRUGS (1)
  1. KINERET [Suspect]
     Active Substance: ANAKINRA
     Indication: Gout
     Dosage: KINERET SQ SYR 100 MG/0.67ML  7/PK?100MG DAILY
     Route: 058
     Dates: start: 20231113

REACTIONS (9)
  - Off label use [Not Recovered/Not Resolved]
  - Product use issue [Unknown]
  - Product dose omission issue [Unknown]
  - Blood glucose increased [Unknown]
  - Aspartate aminotransferase increased [Unknown]
  - Back pain [Unknown]
  - Renal failure [Unknown]
  - Urinary tract infection [Unknown]
  - Sepsis [Unknown]

NARRATIVE: CASE EVENT DATE: 20231113
